FAERS Safety Report 22688765 (Version 2)
Quarter: 2024Q1

REPORT INFORMATION
  Report Type: Spontaneous
  Country: EG (occurrence: EG)
  Receive Date: 20230710
  Receipt Date: 20240131
  Transmission Date: 20240410
  Serious: Yes (Other)
  Sender: FDA-Public Use
  Company Number: EG-ABBVIE-5319761

PATIENT

DRUGS (1)
  1. SEVOFLURANE [Suspect]
     Active Substance: SEVOFLURANE
     Indication: Sedative therapy
     Route: 055
     Dates: start: 2022

REACTIONS (6)
  - Oxygen saturation decreased [Unknown]
  - Laryngospasm [Unknown]
  - Vomiting [Unknown]
  - Procedural complication [Unknown]
  - Endotracheal intubation [Unknown]
  - Agitation [Unknown]

NARRATIVE: CASE EVENT DATE: 20220101
